FAERS Safety Report 6624080-8 (Version None)
Quarter: 2010Q1

REPORT INFORMATION
  Report Type: 
  Country: None (occurrence: None)
  Receive Date: 20100310
  Receipt Date: 20100302
  Transmission Date: 20100710
  Serious: Yes (Hospitalization, Disabling)
  Sender: FDA-Public Use
  Company Number: MX-ROCHE-463773

PATIENT
  Sex: Female
  Weight: 53.5 kg

DRUGS (7)
  1. TOCILIZUMAB [Suspect]
     Indication: RHEUMATOID ARTHRITIS
     Dosage: ESCAPE ARM.
     Route: 042
     Dates: start: 20060817, end: 20060912
  2. BLINDED TOCILIZUMAB [Suspect]
     Indication: RHEUMATOID ARTHRITIS
     Dosage: DOSAGE FORM REPORTED AS INFUSION.
     Route: 042
     Dates: end: 20060817
  3. METHOTREXATE [Concomitant]
     Indication: RHEUMATOID ARTHRITIS
     Route: 048
     Dates: start: 19970615
  4. FOLIC ACID [Concomitant]
     Indication: RHEUMATOID ARTHRITIS
     Route: 048
     Dates: start: 19970615
  5. MELOXICAM [Concomitant]
     Dates: start: 20060703
  6. DEFLAZACORT [Concomitant]
     Indication: RHEUMATOID ARTHRITIS
     Route: 048
     Dates: start: 20050915
  7. PARACETAMOL [Concomitant]
     Dates: start: 20060410

REACTIONS (32)
  - ABDOMINAL DISTENSION [None]
  - ABDOMINAL PAIN [None]
  - ASPIRATION [None]
  - BILE DUCT STONE [None]
  - CELLULITIS [None]
  - CONVULSION [None]
  - CYTOMEGALOVIRUS INFECTION [None]
  - DIFFUSE VASCULITIS [None]
  - GLOMERULONEPHRITIS [None]
  - HAEMATOCHEZIA [None]
  - HAEMODIALYSIS [None]
  - HEPATOTOXICITY [None]
  - HYPERTENSION [None]
  - HYPOGLYCAEMIA [None]
  - HYPOTENSION [None]
  - LEUKOCYTOCLASTIC VASCULITIS [None]
  - NEUTROPENIA [None]
  - OEDEMA [None]
  - OESOPHAGITIS [None]
  - PAIN [None]
  - PANCREATITIS [None]
  - PLATELET COUNT DECREASED [None]
  - PLEURAL EFFUSION [None]
  - PROTEINURIA [None]
  - RENAL FAILURE ACUTE [None]
  - RESPIRATORY DISTRESS [None]
  - RESPIRATORY FAILURE [None]
  - SEPSIS [None]
  - SYNCOPE [None]
  - ULCER [None]
  - URINARY TRACT INFECTION [None]
  - VAGINAL HAEMORRHAGE [None]
